FAERS Safety Report 14634381 (Version 2)
Quarter: 2018Q2

REPORT INFORMATION
  Report Type: Report from Study
  Country: DE (occurrence: DE)
  Receive Date: 20180314
  Receipt Date: 20180608
  Transmission Date: 20180711
  Serious: No
  Sender: FDA-Public Use
  Company Number: DE-AMGEN-DEUNI2018006319

PATIENT
  Age: 77 Year
  Sex: Male
  Weight: 70 kg

DRUGS (13)
  1. IRINOTECAN [Suspect]
     Active Substance: IRINOTECAN
     Dosage: 300 MG, UNK
     Route: 065
     Dates: start: 20180426
  2. PANITUMUMAB [Suspect]
     Active Substance: PANITUMUMAB
     Dosage: 315 MG, UNK
     Route: 042
     Dates: start: 20180315
  3. FLUOROURACIL. [Suspect]
     Active Substance: FLUOROURACIL
     Indication: COLORECTAL CANCER METASTATIC
     Dosage: 730 MG, UNK
     Route: 040
     Dates: start: 20180109
  4. FLUOROURACIL. [Suspect]
     Active Substance: FLUOROURACIL
     Dosage: 670 MG, UNK
     Route: 040
     Dates: start: 20180426
  5. FLUOROURACIL. [Suspect]
     Active Substance: FLUOROURACIL
     Dosage: 1000 MG, UNK
     Route: 042
     Dates: start: 20180426
  6. IRINOTECAN [Suspect]
     Active Substance: IRINOTECAN
     Indication: COLORECTAL CANCER METASTATIC
     Dosage: 330 MG, UNK
     Route: 065
     Dates: start: 20180109
  7. IRINOTECAN [Suspect]
     Active Substance: IRINOTECAN
     Dosage: 310 MG, UNK
     Route: 065
     Dates: start: 20180315
  8. FLUOROURACIL. [Suspect]
     Active Substance: FLUOROURACIL
     Dosage: 700 MG, UNK
     Route: 040
     Dates: start: 20180315
  9. FLUOROURACIL. [Suspect]
     Active Substance: FLUOROURACIL
     Dosage: 1040 MG, UNK
     Route: 042
     Dates: start: 20180315
  10. PLIAZON [Concomitant]
     Dosage: 100 UNK, UNK
     Route: 062
     Dates: start: 20180108
  11. PANITUMUMAB [Suspect]
     Active Substance: PANITUMUMAB
     Indication: COLORECTAL CANCER METASTATIC
     Dosage: 420 MG, UNK
     Route: 042
     Dates: start: 20180109
  12. PANITUMUMAB [Suspect]
     Active Substance: PANITUMUMAB
     Dosage: 285 MG, UNK
     Route: 042
     Dates: start: 20180426
  13. FLUOROURACIL. [Suspect]
     Active Substance: FLUOROURACIL
     Dosage: 1090 MG, UNK
     Route: 042
     Dates: start: 20180109

REACTIONS (2)
  - Dermatitis [Recovering/Resolving]
  - Rash [Recovering/Resolving]

NARRATIVE: CASE EVENT DATE: 20180109
